FAERS Safety Report 19191504 (Version 1)
Quarter: 2021Q2

REPORT INFORMATION
  Report Type: Spontaneous
  Country: FR (occurrence: FR)
  Receive Date: 20210428
  Receipt Date: 20210428
  Transmission Date: 20210717
  Serious: Yes (Other)
  Sender: FDA-Public Use
  Company Number: FR-BAUSCH-BL-2021-014480

PATIENT
  Age: 59 Year
  Sex: Female

DRUGS (2)
  1. MOVIPREP [Suspect]
     Active Substance: ASCORBIC ACID\POLYETHYLENE GLYCOL 3350\POTASSIUM CHLORIDE\SODIUM ASCORBATE\SODIUM CHLORIDE\SODIUM SULFATE
     Dosage: 1 LITRE THE DAY BEFORE AND 1 LITRE THE SAME DAY
     Route: 048
     Dates: start: 20210326, end: 20210327
  2. MOVIPREP [Suspect]
     Active Substance: ASCORBIC ACID\POLYETHYLENE GLYCOL 3350\POTASSIUM CHLORIDE\SODIUM ASCORBATE\SODIUM CHLORIDE\SODIUM SULFATE
     Indication: BOWEL PREPARATION
     Route: 065
     Dates: start: 2014

REACTIONS (12)
  - Abdominal pain upper [Recovered/Resolved]
  - Mucous stools [Recovered/Resolved]
  - Gastrointestinal pain [Recovered/Resolved]
  - Gastrointestinal tract irritation [Recovered/Resolved]
  - Regurgitation [Recovered/Resolved]
  - Dyschezia [Unknown]
  - Peripheral swelling [Recovered/Resolved]
  - Diarrhoea [Recovered/Resolved]
  - Haemorrhoids [Recovering/Resolving]
  - Constipation [Recovered/Resolved]
  - Pain [Recovered/Resolved]
  - Faeces hard [Unknown]

NARRATIVE: CASE EVENT DATE: 20110327
